FAERS Safety Report 7223902-X (Version None)
Quarter: 2011Q1

REPORT INFORMATION
  Report Type: 
  Country: None (occurrence: None)
  Receive Date: 20110113
  Receipt Date: 20110103
  Transmission Date: 20110831
  Serious: Yes (Hospitalization)
  Sender: FDA-Public Use
  Company Number: US-BIOGENIDEC-2010BI043812

PATIENT
  Sex: Female

DRUGS (21)
  1. AMITRIPTYLINE [Concomitant]
     Route: 048
  2. METFORMIN [Concomitant]
  3. PRAVASTATIN [Concomitant]
  4. CELEBREX [Concomitant]
     Route: 048
  5. CYCLOBENZAPRINE [Concomitant]
     Route: 048
  6. DETROL LA [Concomitant]
  7. INSULIN 75/25 (NOS) [Concomitant]
  8. LASIX [Concomitant]
  9. LISINOPRIL [Concomitant]
  10. MEGACE [Concomitant]
     Route: 048
  11. ALLEGRA [Concomitant]
     Route: 048
  12. COLACE [Concomitant]
  13. LYRICA [Concomitant]
     Indication: NEUROPATHY PERIPHERAL
  14. INSULIN 70/30 (NOS) [Concomitant]
  15. ASPIRIN [Concomitant]
  16. PROTONIX [Concomitant]
  17. PLAVIX [Concomitant]
  18. POTASSIUM [Concomitant]
  19. ACE INHIBITOR (NOS) [Concomitant]
  20. AVONEX [Suspect]
     Indication: MULTIPLE SCLEROSIS
     Route: 030
     Dates: start: 20030101
  21. LORTAB [Concomitant]

REACTIONS (4)
  - CEREBROVASCULAR ACCIDENT [None]
  - ACUTE MYOCARDIAL INFARCTION [None]
  - ANAEMIA [None]
  - GASTROINTESTINAL HAEMORRHAGE [None]
